FAERS Safety Report 17105211 (Version 1)
Quarter: 2019Q4

REPORT INFORMATION
  Report Type: Spontaneous
  Country: US (occurrence: US)
  Receive Date: 20191203
  Receipt Date: 20191203
  Transmission Date: 20200122
  Serious: No
  Sender: FDA-Public Use
  Company Number: US-SA-2019SA332891

PATIENT
  Sex: Male

DRUGS (1)
  1. LANTUS SOLOSTAR [Suspect]
     Active Substance: INSULIN GLARGINE
     Dosage: 50 U, BID
     Route: 065

REACTIONS (1)
  - Inappropriate schedule of product administration [Unknown]
